FAERS Safety Report 12704781 (Version 1)
Quarter: 2016Q3

REPORT INFORMATION
  Report Type: Spontaneous
  Country: US (occurrence: US)
  Receive Date: 20160831
  Receipt Date: 20160831
  Transmission Date: 20161109
  Serious: No
  Sender: FDA-Public Use
  Company Number: US-ACTELION-A-NJ2016-140267

PATIENT
  Age: 68 Year
  Sex: Female

DRUGS (3)
  1. UPTRAVI [Suspect]
     Active Substance: SELEXIPAG
     Indication: PULMONARY HYPERTENSION
     Dosage: 800 MCG, BID
     Route: 048
     Dates: start: 20160627
  2. UPTRAVI [Suspect]
     Active Substance: SELEXIPAG
     Dosage: 1000 MCG, BID
     Route: 048
  3. UPTRAVI [Suspect]
     Active Substance: SELEXIPAG
     Dosage: 400 MCG, UNK
     Route: 048

REACTIONS (9)
  - Micturition disorder [Unknown]
  - Fatigue [Unknown]
  - Malaise [Unknown]
  - Hyperacusis [Unknown]
  - Asthenia [Unknown]
  - Urinary incontinence [Unknown]
  - Palpitations [Unknown]
  - Headache [Unknown]
  - Peripheral swelling [Unknown]
